FAERS Safety Report 7734132-7 (Version None)
Quarter: 2011Q3

REPORT INFORMATION
  Report Type: 
  Country: None (occurrence: None)
  Receive Date: 20110901
  Receipt Date: 20110817
  Transmission Date: 20111222
  Serious: Yes (Hospitalization, Other)
  Sender: FDA-Public Use
  Company Number: 2011MA009180

PATIENT
  Age: 17 Year
  Sex: Female

DRUGS (4)
  1. IFOSFAMIDE [Suspect]
     Indication: HODGKIN'S DISEASE
     Dates: start: 20070401
  2. ETOPOSIDE [Suspect]
     Indication: HODGKIN'S DISEASE
     Dates: start: 20070401
  3. VINORELBINE [Suspect]
     Indication: HODGKIN'S DISEASE
     Dates: start: 20070401
  4. MITOGUAZONE (MITOGUAZONE) [Suspect]
     Indication: HODGKIN'S DISEASE
     Dates: start: 20070401

REACTIONS (29)
  - C-REACTIVE PROTEIN INCREASED [None]
  - SKIN EXFOLIATION [None]
  - WEIGHT INCREASED [None]
  - TACHYCARDIA [None]
  - MUCOSAL INFLAMMATION [None]
  - GLOSSITIS [None]
  - CAPILLARY LEAK SYNDROME [None]
  - LIVEDO RETICULARIS [None]
  - PARAESTHESIA [None]
  - OEDEMA PERIPHERAL [None]
  - HYPOTENSION [None]
  - DERMATITIS BULLOUS [None]
  - SKIN NECROSIS [None]
  - HYPOTHERMIA [None]
  - PANNICULITIS [None]
  - HYPONATRAEMIA [None]
  - PROTEINURIA [None]
  - MYALGIA [None]
  - RASH MACULAR [None]
  - GLOSSODYNIA [None]
  - HYPOALBUMINAEMIA [None]
  - HYPERAESTHESIA [None]
  - SKIN DISORDER [None]
  - OEDEMA [None]
  - VULVITIS [None]
  - VAGINAL INFLAMMATION [None]
  - ASTHENIA [None]
  - BLISTER [None]
  - INFLAMMATION [None]
